FAERS Safety Report 5807573-2 (Version None)
Quarter: 2008Q3

REPORT INFORMATION
  Report Type: 
  Country: None (occurrence: None)
  Receive Date: 20080711
  Receipt Date: 20080701
  Transmission Date: 20090109
  Serious: Yes (Other)
  Sender: FDA-Public Use
  Company Number: ES-ABBOTT-08P-144-0461568-00

PATIENT
  Age: 23 Year
  Sex: Female

DRUGS (2)
  1. HUMIRA [Suspect]
     Indication: CROHN'S DISEASE
     Route: 058
     Dates: start: 20071101, end: 20080506
  2. METHOTREXATE [Suspect]
     Indication: CROHN'S DISEASE
     Route: 048
     Dates: start: 20070101, end: 20071114

REACTIONS (2)
  - ABORTION SPONTANEOUS [None]
  - DRUG INEFFECTIVE [None]
